FAERS Safety Report 13128282 (Version 2)
Quarter: 2017Q1

REPORT INFORMATION
  Report Type: Report from Study
  Country: US (occurrence: US)
  Receive Date: 20170118
  Receipt Date: 20170209
  Transmission Date: 20170428
  Serious: Yes (Hospitalization, Other)
  Sender: FDA-Public Use
  Company Number: PHEH2017US001365

PATIENT
  Sex: Male
  Weight: 95.24 kg

DRUGS (5)
  1. LASIX [Concomitant]
     Active Substance: FUROSEMIDE
     Indication: PORTAL HYPERTENSION
     Dosage: 20 MG, QD
     Route: 048
  2. SANDOSTATIN LAR DEPOT [Suspect]
     Active Substance: OCTREOTIDE ACETATE
     Indication: PORTAL HYPERTENSION
     Dosage: UNK UNK, QMO
     Route: 030
  3. FOLIC ACID. [Concomitant]
     Active Substance: FOLIC ACID
     Indication: FOLATE DEFICIENCY
     Dosage: 100 MG, QD
     Route: 048
  4. ALDACTONE [Concomitant]
     Active Substance: SPIRONOLACTONE
     Indication: PORTAL HYPERTENSION
     Dosage: 50 MG, QD
     Route: 048
  5. PROPRANOLOL [Concomitant]
     Active Substance: PROPRANOLOL HYDROCHLORIDE
     Indication: PORTAL HYPERTENSION
     Dosage: 50 MG, BID
     Route: 048

REACTIONS (8)
  - Blister [Unknown]
  - Product use issue [Unknown]
  - Injury [Unknown]
  - Road traffic accident [Unknown]
  - Skin ulcer [Unknown]
  - Haemorrhage [Unknown]
  - Spinal fracture [Unknown]
  - Varicose vein [Unknown]
